FAERS Safety Report 18727285 (Version 1)
Quarter: 2021Q1

REPORT INFORMATION
  Report Type: Spontaneous
  Country: US (occurrence: US)
  Receive Date: 20210111
  Receipt Date: 20210111
  Transmission Date: 20210419
  Serious: No
  Sender: FDA-Public Use
  Company Number: US-ROCHE-2692380

PATIENT

DRUGS (1)
  1. HEMLIBRA [Suspect]
     Active Substance: EMICIZUMAB-KXWH
     Indication: ACQUIRED HAEMOPHILIA
     Dosage: ONGOING: UNKNOWN
     Route: 058

REACTIONS (3)
  - No adverse event [Unknown]
  - Off label use [Unknown]
  - Intentional product use issue [Unknown]
